FAERS Safety Report 7593138-1 (Version None)
Quarter: 2011Q3

REPORT INFORMATION
  Report Type: 
  Country: None (occurrence: None)
  Receive Date: 20110706
  Receipt Date: 20110705
  Transmission Date: 20111222
  Serious: Yes (Hospitalization, Other)
  Sender: FDA-Public Use
  Company Number: US-PFIZER INC-2011150343

PATIENT
  Sex: Female
  Weight: 62.585 kg

DRUGS (3)
  1. ADVIL LIQUI-GELS [Suspect]
     Indication: INTERVERTEBRAL DISC INJURY
     Dosage: UNK
     Route: 048
     Dates: start: 20101101
  2. TRAMADOL HCL [Suspect]
     Dosage: UNK
     Dates: end: 20110101
  3. METOPROLOL [Concomitant]
     Indication: HYPERTENSION
     Dosage: UNK

REACTIONS (5)
  - BLOOD PRESSURE INCREASED [None]
  - CHEST PAIN [None]
  - SOMNOLENCE [None]
  - HAEMORRHAGE [None]
  - ABDOMINAL PAIN UPPER [None]
